FAERS Safety Report 8545737-8 (Version None)
Quarter: 2012Q3

REPORT INFORMATION
  Report Type: 
  Country: None (occurrence: None)
  Receive Date: 20120727
  Receipt Date: 20120717
  Transmission Date: 20120928
  Serious: Yes (Death, Hospitalization)
  Sender: FDA-Public Use
  Company Number: US-MYLANLABS-2010S1018532

PATIENT
  Age: 60 Year
  Sex: Male
  Weight: 101.15 kg

DRUGS (7)
  1. GABAPENTIN [Concomitant]
     Route: 048
  2. VYTORIN [Concomitant]
     Dosage: 10MG/20MG
     Route: 048
  3. VALIUM [Concomitant]
     Route: 048
  4. FENTANYL-100 [Suspect]
     Indication: BACK PAIN
     Dosage: CHANGE Q3D
     Route: 062
     Dates: start: 20081211, end: 20081212
  5. TRAMADOL HYDROCHLORIDE [Concomitant]
     Route: 048
  6. DILAUDID [Concomitant]
  7. BENADRYL [Concomitant]

REACTIONS (3)
  - TOXICITY TO VARIOUS AGENTS [None]
  - CARDIAC ARREST [None]
  - RESPIRATORY ARREST [None]
